FAERS Safety Report 5574627-8 (Version None)
Quarter: 2007Q4

REPORT INFORMATION
  Report Type: 
  Country: None (occurrence: None)
  Receive Date: 20071226
  Receipt Date: 20071226
  Transmission Date: 20080405
  Serious: Yes (Other)
  Sender: FDA-Public Use
  Company Number: None

PATIENT
  Age: 49 Day
  Sex: Female
  Weight: 58.9676 kg

DRUGS (1)
  1. FOSAMAX [Suspect]
     Indication: OSTEOPOROSIS
     Dosage: 70 MG  ONCE A WEEK  PO
     Route: 048
     Dates: start: 20071214, end: 20071220

REACTIONS (7)
  - ABASIA [None]
  - ARTHRALGIA [None]
  - DIARRHOEA [None]
  - DYSGEUSIA [None]
  - MYALGIA [None]
  - NO THERAPEUTIC RESPONSE [None]
  - PAIN [None]
